FAERS Safety Report 16660676 (Version 1)
Quarter: 2019Q3

REPORT INFORMATION
  Report Type: Spontaneous
  Country: CA (occurrence: CA)
  Receive Date: 20190802
  Receipt Date: 20190802
  Transmission Date: 20191004
  Serious: Yes (Death, Hospitalization, Other)
  Sender: FDA-Public Use
  Company Number: CA-JNJFOC-20190743541

PATIENT
  Age: 16 Year
  Sex: Female

DRUGS (23)
  1. IRON [Concomitant]
     Active Substance: IRON
     Route: 065
  2. PREDNISONE. [Concomitant]
     Active Substance: PREDNISONE
     Route: 065
  3. TACROLIMUS. [Suspect]
     Active Substance: TACROLIMUS
     Indication: STILL^S DISEASE
     Route: 065
  4. ETOPOSIDE. [Suspect]
     Active Substance: ETOPOSIDE
     Indication: JUVENILE IDIOPATHIC ARTHRITIS
  5. HYDROXYCHLOROQUINE [Concomitant]
     Active Substance: HYDROXYCHLOROQUINE
     Route: 065
  6. LEFLUNOMIDE. [Concomitant]
     Active Substance: LEFLUNOMIDE
     Route: 065
  7. ENBREL [Suspect]
     Active Substance: ETANERCEPT
     Indication: STILL^S DISEASE
     Route: 065
  8. THALOMID [Suspect]
     Active Substance: THALIDOMIDE
     Indication: STILL^S DISEASE
     Route: 048
  9. CYCLOPHOSPHAMIDE. [Concomitant]
     Active Substance: CYCLOPHOSPHAMIDE
     Route: 065
  10. CALCIUM [Concomitant]
     Active Substance: CALCIUM
  11. ANAKINRA [Suspect]
     Active Substance: ANAKINRA
     Indication: JUVENILE IDIOPATHIC ARTHRITIS
     Route: 065
  12. ETOPOSIDE. [Suspect]
     Active Substance: ETOPOSIDE
     Indication: STILL^S DISEASE
     Route: 065
  13. TACROLIMUS. [Suspect]
     Active Substance: TACROLIMUS
     Indication: JUVENILE IDIOPATHIC ARTHRITIS
  14. ANAKINRA [Suspect]
     Active Substance: ANAKINRA
     Indication: STILL^S DISEASE
     Route: 058
  15. CICLOSPORIN [Suspect]
     Active Substance: CYCLOSPORINE
     Indication: JUVENILE IDIOPATHIC ARTHRITIS
     Route: 048
  16. INFLIXIMAB, RECOMBINANT [Suspect]
     Active Substance: INFLIXIMAB
     Indication: STILL^S DISEASE
     Route: 042
  17. ACETAZOLAMIDE                      /00016902/ [Concomitant]
     Active Substance: ACETAZOLAMIDE SODIUM
     Route: 065
  18. ENBREL [Suspect]
     Active Substance: ETANERCEPT
     Dosage: 2 DF OFF 10MG EVERY 1 WEEK
     Route: 058
  19. METHOTREXATE. [Suspect]
     Active Substance: METHOTREXATE
     Indication: STILL^S DISEASE
     Route: 030
  20. INFLIXIMAB, RECOMBINANT [Suspect]
     Active Substance: INFLIXIMAB
     Indication: STILL^S DISEASE
     Route: 042
  21. THALOMID [Suspect]
     Active Substance: THALIDOMIDE
     Indication: OFF LABEL USE
  22. ALENDRONATE SODIUM. [Concomitant]
     Active Substance: ALENDRONATE SODIUM
     Route: 065
  23. AZATHIOPRINE. [Concomitant]
     Active Substance: AZATHIOPRINE
     Route: 065

REACTIONS (10)
  - Hepatosplenic T-cell lymphoma [Fatal]
  - Hair follicle tumour benign [Fatal]
  - Product use in unapproved indication [Unknown]
  - Pyrexia [Fatal]
  - Hypotension [Fatal]
  - Thrombocytopenia [Fatal]
  - Tachycardia [Fatal]
  - Complications of bone marrow transplant [Fatal]
  - Abdominal pain upper [Fatal]
  - Splenomegaly [Fatal]
